FAERS Safety Report 10336041 (Version 1)
Quarter: 2014Q3

REPORT INFORMATION
  Report Type: Spontaneous
  Country: US (occurrence: US)
  Receive Date: 20140723
  Receipt Date: 20140723
  Transmission Date: 20150326
  Serious: No
  Sender: FDA-Public Use
  Company Number: US-BRISTOL-MYERS SQUIBB COMPANY-19547785

PATIENT
  Age: 80 Year
  Sex: Female
  Weight: 57.59 kg

DRUGS (3)
  1. TYLENOL [Concomitant]
     Active Substance: ACETAMINOPHEN
     Indication: HEADACHE
  2. COUMADIN [Suspect]
     Active Substance: WARFARIN SODIUM
     Indication: ATRIAL FIBRILLATION
     Dates: start: 20081203
  3. BUFFERIN [Concomitant]
     Active Substance: ASPIRIN
     Indication: HEADACHE

REACTIONS (4)
  - Rash erythematous [Unknown]
  - Abdominal pain upper [Unknown]
  - Lethargy [Unknown]
  - Abdominal distension [Unknown]
